FAERS Safety Report 9430372 (Version 2)
Quarter: 2013Q4

REPORT INFORMATION
  Report Type: Spontaneous
  Country: US (occurrence: US)
  Receive Date: 20130730
  Receipt Date: 20131018
  Transmission Date: 20140711
  Serious: Yes (Congenital Anomaly)
  Sender: FDA-Public Use
  Company Number: US-GLAXOSMITHKLINE-A1035474A

PATIENT
  Age: 0 Day
  Sex: Female
  Weight: 3.2 kg

DRUGS (1)
  1. BUPROPION [Suspect]
     Indication: PRODUCT USED FOR UNKNOWN INDICATION
     Dosage: 150MG TWICE PER DAY
     Route: 064
     Dates: start: 20080312, end: 20091208

REACTIONS (2)
  - Cleft palate [Unknown]
  - Foetal exposure during pregnancy [Unknown]
